FAERS Safety Report 20332247 (Version 1)
Quarter: 2022Q1

REPORT INFORMATION
  Report Type: Spontaneous
  Country: US (occurrence: None)
  Receive Date: 20220113
  Receipt Date: 20220113
  Transmission Date: 20220423
  Serious: No
  Sender: FDA-Public Use
  Company Number: None

PATIENT
  Age: 69 Year
  Sex: Female

DRUGS (1)
  1. ESTRADIOL [Suspect]
     Active Substance: ESTRADIOL
     Dosage: OTHER FREQUENCY : TWICE WEEKLY;?

REACTIONS (3)
  - Inflammation [None]
  - Dysuria [None]
  - Product substitution issue [None]

NARRATIVE: CASE EVENT DATE: 20220101
